FAERS Safety Report 19409326 (Version 1)
Quarter: 2021Q2

REPORT INFORMATION
  Report Type: Report from Study
  Country: None (occurrence: US)
  Receive Date: 20210614
  Receipt Date: 20210614
  Transmission Date: 20210717
  Serious: Yes (Hospitalization, Disabling, Other)
  Sender: FDA-Public Use
  Company Number: US-ABBVIE-21K-163-3935173-00

PATIENT
  Age: 19 Year
  Sex: Female
  Weight: 114.86 kg

DRUGS (3)
  1. HUMIRA [Suspect]
     Active Substance: ADALIMUMAB
     Indication: HIDRADENITIS
     Dosage: CITRATE FREE
     Route: 058
     Dates: start: 2019, end: 202005
  2. KEFLEX [Concomitant]
     Active Substance: CEPHALEXIN
     Indication: INFECTION PROPHYLAXIS
  3. KEFLEX [Concomitant]
     Active Substance: CEPHALEXIN
     Indication: INFECTION PROPHYLAXIS

REACTIONS (8)
  - Arrested labour [Recovered/Resolved]
  - Maternal exposure during pregnancy [Unknown]
  - Skin lesion [Recovering/Resolving]
  - Hidradenitis [Recovering/Resolving]
  - Furuncle [Recovering/Resolving]
  - Prolonged labour [Recovered/Resolved]
  - Live birth [Unknown]
  - Gestational hypertension [Recovered/Resolved]

NARRATIVE: CASE EVENT DATE: 2020
